FAERS Safety Report 12100892 (Version 1)
Quarter: 2016Q1

REPORT INFORMATION
  Report Type: Spontaneous
  Country: BR (occurrence: BR)
  Receive Date: 20160222
  Receipt Date: 20160222
  Transmission Date: 20160526
  Serious: Yes (Other)
  Sender: FDA-Public Use
  Company Number: PHHY2016BR020934

PATIENT
  Age: 60 Year
  Sex: Female

DRUGS (3)
  1. LEFLUNOMIDE. [Suspect]
     Active Substance: LEFLUNOMIDE
     Dosage: 20 MG, QOD
     Route: 065
  2. LEFLUNOMIDE. [Suspect]
     Active Substance: LEFLUNOMIDE
     Indication: RHEUMATOID ARTHRITIS
     Dosage: 20 MG, QD
     Route: 065
  3. DEFLAZACORT [Concomitant]
     Active Substance: DEFLAZACORT
     Indication: RHEUMATOID ARTHRITIS
     Dosage: 12 MG, QD
     Route: 065

REACTIONS (1)
  - Nodule [Recovered/Resolved]
